FAERS Safety Report 4489305-6 (Version None)
Quarter: 2004Q4

REPORT INFORMATION
  Report Type: 
  Country: None (occurrence: None)
  Receive Date: 20041026
  Receipt Date: 20041013
  Transmission Date: 20050328
  Serious: Yes (Hospitalization, Other)
  Sender: FDA-Public Use
  Company Number: HQWYE757514OCT04

PATIENT
  Age: 62 Year
  Sex: Female

DRUGS (11)
  1. CEPHORAL          (CEFIXIME, TABLET) [Suspect]
     Indication: BRONCHITIS ACUTE
     Dosage: 200 MG 2X PER 1 DAY ORAL
     Route: 048
     Dates: start: 20040311, end: 20040312
  2. AFONILUM (THEOPHYLLINE) [Concomitant]
  3. BEROTEC (FENOTEROL HYDROBROMIDE) [Concomitant]
  4. DEKRISTOL (COLECALCIFEROL) [Concomitant]
  5. INSULIN ACTRAPHAN HUMAN      (INSULIN HUMAN INJECTION, ISOPHANE) [Concomitant]
  6. JENACARD  (ISOSORBIDE DINITRATE) [Concomitant]
  7. METIZOL (THIAMAZOLE) [Concomitant]
  8. SPIRONOLACTONE [Concomitant]
  9. URSO FALK [Concomitant]
  10. VASOMOTAL   (BETAHISTINE HYDROCHLORIDE) [Concomitant]
  11. VERAPAMIL [Concomitant]

REACTIONS (5)
  - CHILLS [None]
  - DYSPNOEA [None]
  - HYPERSENSITIVITY [None]
  - TACHYCARDIA [None]
  - URTICARIA [None]
